FAERS Safety Report 14677026 (Version 2)
Quarter: 2018Q1

REPORT INFORMATION
  Report Type: Spontaneous
  Country: PL (occurrence: PL)
  Receive Date: 20180324
  Receipt Date: 20180327
  Transmission Date: 20180509
  Serious: Yes (Death, Hospitalization, Other)
  Sender: FDA-Public Use
  Company Number: PL-JNJFOC-20180318948

PATIENT

DRUGS (4)
  1. IBUPROFEN. [Suspect]
     Active Substance: IBUPROFEN
     Indication: PRODUCT USED FOR UNKNOWN INDICATION
     Route: 065
  2. PARACETAMOL [Suspect]
     Active Substance: ACETAMINOPHEN
     Route: 065
  3. ALCOHOL. [Suspect]
     Active Substance: ALCOHOL
     Indication: PRODUCT USED FOR UNKNOWN INDICATION
     Route: 065
  4. PARACETAMOL [Suspect]
     Active Substance: ACETAMINOPHEN
     Indication: PRODUCT USED FOR UNKNOWN INDICATION
     Route: 065

REACTIONS (13)
  - Drug abuse [Unknown]
  - Liver injury [Unknown]
  - Accidental poisoning [Unknown]
  - Adverse event [Unknown]
  - Overdose [Unknown]
  - Suicide attempt [Unknown]
  - Medication error [Unknown]
  - Gastrointestinal disorder [Unknown]
  - Jaundice [Unknown]
  - Organ failure [Unknown]
  - Drug administration error [Unknown]
  - Toxicity to various agents [Unknown]
  - Death [Fatal]
